FAERS Safety Report 13615090 (Version 1)
Quarter: 2017Q2

REPORT INFORMATION
  Report Type: Report from Study
  Country: US (occurrence: US)
  Receive Date: 20170606
  Receipt Date: 20170606
  Transmission Date: 20170830
  Serious: Yes (Life-Threatening)
  Sender: FDA-Public Use
  Company Number: US-BION-006364

PATIENT
  Age: 39 Year
  Sex: Male

DRUGS (2)
  1. LOPERAMIDE UNKNOWN PRODUCT [Suspect]
     Active Substance: LOPERAMIDE
  2. METHYLENEDIOXYMETHAMPHETAMINE [Suspect]
     Active Substance: MIDOMAFETAMINE

REACTIONS (6)
  - Muscular weakness [Unknown]
  - Confusional state [Unknown]
  - Respiratory depression [Unknown]
  - Lethargy [Unknown]
  - Intentional product misuse [Not Recovered/Not Resolved]
  - Somnolence [Unknown]
